FAERS Safety Report 6403803-7 (Version None)
Quarter: 2009Q4

REPORT INFORMATION
  Report Type: 
  Country: None (occurrence: None)
  Receive Date: 20091015
  Receipt Date: 20091015
  Transmission Date: 20100525
  Serious: Yes (Hospitalization)
  Sender: FDA-Public Use
  Company Number: None

PATIENT
  Sex: Male
  Weight: 98 kg

DRUGS (3)
  1. ZOMETA [Suspect]
     Dosage: 4 MG
  2. CALCIUM CARBONATE [Suspect]
     Dosage: 1200 MG
  3. VITAMIN D [Suspect]
     Dosage: 800 IU

REACTIONS (4)
  - HYDRONEPHROSIS [None]
  - LYMPHOPENIA [None]
  - RENAL COLIC [None]
  - URETERIC OBSTRUCTION [None]
